FAERS Safety Report 16848616 (Version 1)
Quarter: 2019Q3

REPORT INFORMATION
  Report Type: Spontaneous
  Country: US (occurrence: US)
  Receive Date: 20190925
  Receipt Date: 20190925
  Transmission Date: 20191005
  Serious: No
  Sender: FDA-Public Use
  Company Number: US-IPCA LABORATORIES LIMITED-IPC-2017-US-000352

PATIENT

DRUGS (21)
  1. GLUCOSAMINE CHONDRO COMPLEX [Concomitant]
     Dosage: 2 DF, DAILY
  2. METANX [Concomitant]
     Active Substance: LEVOMEFOLATE CALCIUM\METHYLCOBALAMIN\PYRIDOXAL PHOSPHATE ANHYDROUS
     Dosage: 1 DF, DAILY
  3. SIMVASTATIN. [Concomitant]
     Active Substance: SIMVASTATIN
     Dosage: 1 DF, BEDTIME
     Route: 048
  4. PRAVASTATIN. [Suspect]
     Active Substance: PRAVASTATIN
  5. METFORMIN [Suspect]
     Active Substance: METFORMIN HYDROCHLORIDE
     Indication: PRODUCT USED FOR UNKNOWN INDICATION
  6. ASPIRIN. [Concomitant]
     Active Substance: ASPIRIN
     Dosage: 81 MG, DAILY
  7. MULTIVITAMIN [Concomitant]
     Active Substance: VITAMINS
     Dosage: 1 DF, DAILY
  8. PILOCARPINE HCL [Concomitant]
     Active Substance: PILOCARPINE HYDROCHLORIDE
     Dosage: 1 DF, BEDTIME
  9. ATENOLOL. [Concomitant]
     Active Substance: ATENOLOL
     Dosage: 100 MG, NOCTE
     Route: 048
  10. FUROSEMIDE. [Concomitant]
     Active Substance: FUROSEMIDE
     Dosage: 1 DF, DAILY
     Route: 048
  11. TOUJEO [Concomitant]
     Active Substance: INSULIN GLARGINE
     Dosage: 300 UNIT/ML
     Route: 058
  12. VITAMIN D [Concomitant]
     Active Substance: VITAMIN D NOS
     Dosage: 1 DF, DAILY
     Route: 048
  13. LIPITOR [Suspect]
     Active Substance: ATORVASTATIN CALCIUM
     Indication: PRODUCT USED FOR UNKNOWN INDICATION
  14. GLIPIZIDE. [Concomitant]
     Active Substance: GLIPIZIDE
     Dosage: 1 DF, BID
     Route: 048
  15. LANTUS [Concomitant]
     Active Substance: INSULIN GLARGINE
     Dosage: 8-10 UNITS AT BEDTIME ONLY IF BLOOD SUGAR IS GREATER THAN 170
     Route: 058
  16. LEVEMIR [Concomitant]
     Active Substance: INSULIN DETEMIR
     Dosage: 8-10 UNITS AT BEDTIME ONLY IF TWO HOURS BLOOD SUGAR IS GREATER THAN 170
     Route: 058
  17. ULORIC [Concomitant]
     Active Substance: FEBUXOSTAT
     Dosage: 1 DF, DAILY
     Route: 048
  18. GLIPIZIDE. [Concomitant]
     Active Substance: GLIPIZIDE
     Dosage: 1 DF, BID
     Route: 048
  19. LYRICA [Suspect]
     Active Substance: PREGABALIN
     Indication: PRODUCT USED FOR UNKNOWN INDICATION
     Dosage: 1 DF, TID
     Route: 048
  20. OXYCODONE AND ACETAMINOPHEN [Concomitant]
     Active Substance: ACETAMINOPHEN\OXYCODONE HYDROCHLORIDE
     Dosage: 3 TAB DAILY
     Route: 048
  21. FISH OIL [Concomitant]
     Active Substance: FISH OIL
     Dosage: 2 DF, DAILY
     Route: 048

REACTIONS (1)
  - Drug hypersensitivity [Unknown]
